FAERS Safety Report 13460005 (Version 1)
Quarter: 2017Q2

REPORT INFORMATION
  Report Type: Spontaneous
  Country: US (occurrence: US)
  Receive Date: 20170420
  Receipt Date: 20170420
  Transmission Date: 20170830
  Serious: No
  Sender: FDA-Public Use
  Company Number: US-TEVA-717254USA

PATIENT
  Age: 83 Year
  Sex: Male

DRUGS (1)
  1. ZOLPIDEM TARTRATE. [Suspect]
     Active Substance: ZOLPIDEM TARTRATE

REACTIONS (6)
  - Balance disorder [Unknown]
  - Visual impairment [Unknown]
  - Off label use [Unknown]
  - Vertigo [Unknown]
  - Fall [Unknown]
  - Tremor [Unknown]

NARRATIVE: CASE EVENT DATE: 20161128
